FAERS Safety Report 5899705-5 (Version None)
Quarter: 2008Q3

REPORT INFORMATION
  Report Type: 
  Country: None (occurrence: None)
  Receive Date: 20080923
  Receipt Date: 20080919
  Transmission Date: 20090109
  Serious: Yes (Hospitalization)
  Sender: FDA-Public Use
  Company Number: 200813823

PATIENT
  Age: 18 Year
  Sex: Female
  Weight: 51.7101 kg

DRUGS (1)
  1. RHOPHYLAC [Suspect]
     Indication: PROPHYLAXIS AGAINST RH ISOIMMUNISATION
     Dosage: 300 UG ONCE IM
     Route: 030
     Dates: start: 20080705, end: 20080705

REACTIONS (13)
  - ARTHRALGIA [None]
  - ASTHENIA [None]
  - BACTERIAL INFECTION [None]
  - DISORIENTATION [None]
  - DYSARTHRIA [None]
  - INJECTION SITE ERYTHEMA [None]
  - INJECTION SITE NODULE [None]
  - PUERPERAL PYREXIA [None]
  - SEPSIS [None]
  - VISION BLURRED [None]
  - WHITE BLOOD CELL COUNT DECREASED [None]
  - WHITE BLOOD CELL COUNT INCREASED [None]
  - WRONG TECHNIQUE IN DRUG USAGE PROCESS [None]
